FAERS Safety Report 25839153 (Version 2)
Quarter: 2025Q4

REPORT INFORMATION
  Report Type: Spontaneous
  Country: US (occurrence: US)
  Receive Date: 20250924
  Receipt Date: 20251003
  Transmission Date: 20260117
  Serious: Yes (Other)
  Sender: BAXTER
  Company Number: US-BAXTER-2025BAX021141

PATIENT
  Age: 64 Year
  Sex: Female

DRUGS (8)
  1. DOXIL [Suspect]
     Active Substance: DOXORUBICIN HYDROCHLORIDE
     Indication: Uterine cancer
     Dosage: 100 MG, SUSP 10 ML VIAL (IN DEXTROSE 5% 606 ML INFUSION)
     Route: 042
     Dates: start: 20250909, end: 20250909
  2. HEPARIN SODIUM [Suspect]
     Active Substance: HEPARIN SODIUM
     Indication: Catheter management
     Dosage: 500 UNITS (U), IVP, INTRACATHETER (HEPARIN LOCK FLUSH INJECTION)
     Route: 042
     Dates: start: 20250909
  3. SODIUM CHLORIDE [Suspect]
     Active Substance: SODIUM CHLORIDE
     Indication: Catheter management
     Dosage: 20 ML (NS FLUSH/0.9% NACL INJECTION), IVP (INTRACATHETER)
     Route: 042
     Dates: start: 20250909
  4. SODIUM CHLORIDE [Suspect]
     Active Substance: SODIUM CHLORIDE
     Indication: Fluid replacement
     Dosage: 250 ML (NS 0.9%/NACL INFUSION), 0 ML/HR
     Route: 042
     Dates: start: 20250909, end: 20250909
  5. SODIUM CHLORIDE [Suspect]
     Active Substance: SODIUM CHLORIDE
     Dosage: ADS MED (0 ML/HR), 0.9% NACL INFUSION
     Route: 065
     Dates: end: 20250909
  6. DEXTROSE [Suspect]
     Active Substance: DEXTROSE MONOHYDRATE
     Indication: Vascular catheterisation
     Dosage: 250 ML (D5W/DEXTROSE 5% INFUSION)
     Route: 042
     Dates: start: 20250909, end: 20250909
  7. DEXTROSE [Suspect]
     Active Substance: DEXTROSE MONOHYDRATE
     Indication: Medication dilution
     Dosage: 500 ML (D5W BASE FLUID), DEXTROSE 5% 606 ML INFUSION (WITH DOXIL 100 MG)
     Route: 042
     Dates: start: 20250909, end: 20250909
  8. DECADRON [Concomitant]
     Active Substance: DEXAMETHASONE
     Indication: Premedication
     Dosage: 20 MG, IVP
     Route: 042
     Dates: start: 20250909

REACTIONS (8)
  - Ill-defined disorder [Recovering/Resolving]
  - Muscle spasms [Recovered/Resolved]
  - Spinal pain [Recovered/Resolved]
  - Feeling hot [Unknown]
  - Abdominal pain upper [Recovered/Resolved]
  - Hypertension [Recovered/Resolved]
  - Flushing [Recovered/Resolved]
  - Back pain [Recovered/Resolved]

NARRATIVE: CASE EVENT DATE: 20250909
